FAERS Safety Report 6734224-5 (Version None)
Quarter: 2010Q2

REPORT INFORMATION
  Report Type: 
  Country: None (occurrence: None)
  Receive Date: 20100520
  Receipt Date: 20100507
  Transmission Date: 20101027
  Serious: Yes (Other)
  Sender: FDA-Public Use
  Company Number: PHHY2010US29819

PATIENT
  Sex: Female

DRUGS (3)
  1. DIOVAN HCT [Suspect]
     Dosage: 160/12.5, ONCE A DAY
  2. PLAVIX [Concomitant]
  3. LIPITOR [Concomitant]

REACTIONS (3)
  - ABDOMINAL DISCOMFORT [None]
  - MALAISE [None]
  - MYOCARDIAL INFARCTION [None]
